FAERS Safety Report 16827104 (Version 1)
Quarter: 2019Q3

REPORT INFORMATION
  Report Type: Spontaneous
  Country: US (occurrence: US)
  Receive Date: 20190729
  Receipt Date: 20190729
  Transmission Date: 20191005
  Serious: No
  Sender: FDA-Public Use
  Company Number: None

PATIENT
  Age: 49 Year
  Sex: Female

DRUGS (1)
  1. REBIF [Suspect]
     Active Substance: INTERFERON BETA-1A
     Dosage: ?          OTHER STRENGTH:44/0.5 UG/ML;?
     Route: 058
     Dates: start: 201601

REACTIONS (1)
  - Injection site erythema [None]

NARRATIVE: CASE EVENT DATE: 20190729
